FAERS Safety Report 11315881 (Version 1)
Quarter: 2015Q3

REPORT INFORMATION
  Report Type: Spontaneous
  Country: US (occurrence: None)
  Receive Date: 20150727
  Receipt Date: 20150727
  Transmission Date: 20151125
  Serious: Yes (Death)
  Sender: FDA-Public Use
  Company Number: None

PATIENT
  Age: 66 Year
  Sex: Male

DRUGS (1)
  1. FACTOR VII [Suspect]
     Active Substance: COAGULATION FACTOR VII HUMAN
     Indication: HAEMORRHAGE
     Dosage: 8000 MCG  ONCE IV
     Route: 042
     Dates: start: 20150602, end: 20150602

REACTIONS (3)
  - Delayed recovery from anaesthesia [None]
  - Myocardial infarction [None]
  - Brain midline shift [None]

NARRATIVE: CASE EVENT DATE: 20150604
